FAERS Safety Report 6018760-5 (Version None)
Quarter: 2008Q4

REPORT INFORMATION
  Report Type: 
  Country: None (occurrence: None)
  Receive Date: 20081223
  Receipt Date: 20081217
  Transmission Date: 20090506
  Serious: Yes (Death, Hospitalization)
  Sender: FDA-Public Use
  Company Number: US-GILEAD-2008-0019358

PATIENT
  Sex: Male

DRUGS (8)
  1. TRUVADA [Suspect]
     Indication: HIV INFECTION
  2. PEPCID [Suspect]
  3. NORVIR [Concomitant]
  4. EPIVIR [Concomitant]
  5. REYATAZ [Concomitant]
  6. LANTUS [Concomitant]
     Dosage: 100 UNIT/ML AS DIRECTED
     Route: 058
  7. ACTOS [Concomitant]
  8. ALBUTEROL [Concomitant]
     Indication: ASTHMA
     Dosage: 1-2 PUFFS 4 TIMES DAILY AS NEEDED

REACTIONS (3)
  - HYPOTENSION [None]
  - LACTIC ACIDOSIS [None]
  - RENAL FAILURE ACUTE [None]
